FAERS Safety Report 10022907 (Version 1)
Quarter: 2014Q1

REPORT INFORMATION
  Report Type: Spontaneous
  Country: US (occurrence: US)
  Receive Date: 20140319
  Receipt Date: 20140319
  Transmission Date: 20141002
  Serious: No
  Sender: FDA-Public Use
  Company Number: US-SANOFI-AVENTIS-2013SA019979

PATIENT
  Age: 57 Year
  Sex: Male
  Weight: 104 kg

DRUGS (1)
  1. NASACORT AQ [Suspect]
     Indication: HYPERSENSITIVITY
     Dosage: PRODUCT START DATE WAS 5 YEARS AGO
     Route: 045

REACTIONS (3)
  - Hypersensitivity [Recovered/Resolved]
  - Malaise [Recovered/Resolved]
  - Drug ineffective [Unknown]
